FAERS Safety Report 24721850 (Version 1)
Quarter: 2024Q4

REPORT INFORMATION
  Report Type: Spontaneous
  Country: US (occurrence: US)
  Receive Date: 20241211
  Receipt Date: 20241211
  Transmission Date: 20250115
  Serious: No
  Sender: GILEAD
  Company Number: US-GILEAD-2024-0696607

PATIENT
  Sex: Male

DRUGS (1)
  1. EPCLUSA [Suspect]
     Active Substance: SOFOSBUVIR\VELPATASVIR
     Indication: Hepatitis C
     Dosage: 1 DOSAGE FORM [400/100MG]
     Route: 065
     Dates: start: 20241209

REACTIONS (5)
  - Anxiety [Unknown]
  - Fatigue [Unknown]
  - Abdominal pain upper [Unknown]
  - Vomiting [Unknown]
  - Malaise [Unknown]
